FAERS Safety Report 11275405 (Version 1)
Quarter: 2015Q3

REPORT INFORMATION
  Report Type: Spontaneous
  Country: US (occurrence: None)
  Receive Date: 20150714
  Receipt Date: 20150714
  Transmission Date: 20151125
  Serious: Yes (Hospitalization)
  Sender: FDA-Public Use
  Company Number: PT15-182-AE

PATIENT
  Age: 66 Year
  Sex: Male
  Weight: 86.18 kg

DRUGS (1)
  1. FLECAINIDE [Suspect]
     Active Substance: FLECAINIDE
     Indication: ATRIAL FIBRILLATION

REACTIONS (12)
  - Arthralgia [None]
  - Cardioversion [None]
  - Crystal arthropathy [None]
  - Anticoagulation drug level below therapeutic [None]
  - Drug ineffective [None]
  - Electrocardiogram QT prolonged [None]
  - International normalised ratio increased [None]
  - Joint swelling [None]
  - Vitreous detachment [None]
  - Ejection fraction decreased [None]
  - Cardiac ablation [None]
  - Eye disorder [None]

NARRATIVE: CASE EVENT DATE: 20150311
